FAERS Safety Report 24199590 (Version 1)
Quarter: 2024Q3

REPORT INFORMATION
  Report Type: Spontaneous
  Country: NL (occurrence: NL)
  Receive Date: 20240812
  Receipt Date: 20240812
  Transmission Date: 20241016
  Serious: Yes (Other)
  Sender: DR REDDYS
  Company Number: NL-GERMAN-LIT/NLD/24/0011647

PATIENT
  Age: 52 Year
  Sex: Female

DRUGS (15)
  1. LENALIDOMIDE [Suspect]
     Active Substance: LENALIDOMIDE
     Indication: Plasma cell myeloma
     Dosage: DAYS 1-21
     Route: 048
  2. DEXAMETHASONE [Concomitant]
     Active Substance: DEXAMETHASONE
     Indication: Plasma cell myeloma
     Dosage: 40 MG (DAYS 1, 8, 15, AND 22)
  3. ISATUXIMAB [Concomitant]
     Active Substance: ISATUXIMAB
     Indication: Plasma cell myeloma
     Dosage: INFUSION; (FIRST CYCLE, DAYS 1, 8, 15, 22; CYCLES 2 TO 4, DAYS 1 AND 15).
  4. CARFILZOMIB [Concomitant]
     Active Substance: CARFILZOMIB
     Indication: Plasma cell myeloma
     Dosage: (DAYS 1, 8, AND 15)
     Route: 042
  5. CLEMASTINE [Concomitant]
     Active Substance: CLEMASTINE
     Indication: Flushing
     Route: 042
  6. CLEMASTINE [Concomitant]
     Active Substance: CLEMASTINE
     Indication: Nausea
  7. CLEMASTINE [Concomitant]
     Active Substance: CLEMASTINE
     Indication: Tachycardia
  8. CLEMASTINE [Concomitant]
     Active Substance: CLEMASTINE
     Indication: Cough
  9. CLEMASTINE [Concomitant]
     Active Substance: CLEMASTINE
     Indication: Dyspnoea
  10. PREDNISOLONE [Concomitant]
     Active Substance: PREDNISOLONE
     Indication: Flushing
     Route: 042
  11. PREDNISOLONE [Concomitant]
     Active Substance: PREDNISOLONE
     Indication: Nausea
  12. PREDNISOLONE [Concomitant]
     Active Substance: PREDNISOLONE
     Indication: Tachycardia
  13. PREDNISOLONE [Concomitant]
     Active Substance: PREDNISOLONE
     Indication: Cough
  14. PREDNISOLONE [Concomitant]
     Active Substance: PREDNISOLONE
     Indication: Dyspnoea
  15. MELPHALAN [Concomitant]
     Active Substance: MELPHALAN
     Indication: Plasma cell myeloma
     Dosage: HIGH-DOSE
     Route: 042

REACTIONS (2)
  - Plasma cell myeloma refractory [Unknown]
  - Drug ineffective [Unknown]
